FAERS Safety Report 6626855-8 (Version None)
Quarter: 2010Q1

REPORT INFORMATION
  Report Type: 
  Country: None (occurrence: None)
  Receive Date: 20100308
  Receipt Date: 20100305
  Transmission Date: 20100710
  Serious: Yes (Hospitalization)
  Sender: FDA-Public Use
  Company Number: SP02764

PATIENT
  Age: 67 Year
  Sex: Male

DRUGS (5)
  1. VISICOL [Suspect]
     Indication: COLONOSCOPY
     Dosage: (50 GM), ORAL
     Route: 048
     Dates: start: 20100113, end: 20100113
  2. SODIUM PICOSULFATE (SOLUTION) [Concomitant]
  3. SENNOSIDE [Concomitant]
  4. METOCLOPRAMIDE [Concomitant]
  5. LOSARTAN POTASSIUM [Concomitant]

REACTIONS (7)
  - BLOOD CREATINE PHOSPHOKINASE INCREASED [None]
  - DISORIENTATION [None]
  - HYPOCHLORAEMIA [None]
  - HYPOKALAEMIA [None]
  - HYPONATRAEMIA [None]
  - MUSCULAR WEAKNESS [None]
  - VOMITING [None]
